FAERS Safety Report 4933037-4 (Version None)
Quarter: 2006Q1

REPORT INFORMATION
  Report Type: 
  Country: None (occurrence: None)
  Receive Date: 20060301
  Receipt Date: 20060301
  Transmission Date: 20060701
  Serious: No
  Sender: FDA-Public Use
  Company Number: None

PATIENT
  Age: 58 Year
  Sex: Male
  Weight: 114.3065 kg

DRUGS (1)
  1. CYPHER CORONARY STENT [Suspect]

REACTIONS (5)
  - CHILLS [None]
  - FREQUENT BOWEL MOVEMENTS [None]
  - POLLAKIURIA [None]
  - RASH ERYTHEMATOUS [None]
  - RASH PUSTULAR [None]
